FAERS Safety Report 15353614 (Version 7)
Quarter: 2022Q1

REPORT INFORMATION
  Report Type: Spontaneous
  Country: CA (occurrence: CA)
  Receive Date: 20180905
  Receipt Date: 20220130
  Transmission Date: 20220423
  Serious: Yes (Death, Other)
  Sender: FDA-Public Use
  Company Number: None

PATIENT
  Age: 5 Month
  Sex: Female

DRUGS (17)
  1. ERWINASE [Suspect]
     Active Substance: ASPARAGINASE ERWINIA CHRYSANTHEMI
     Indication: Acute lymphocytic leukaemia
     Dosage: POWDER FOR SOLUTION
     Route: 065
  2. DEXAMETHASONE [Suspect]
     Active Substance: DEXAMETHASONE
     Indication: Acute lymphocytic leukaemia
     Route: 065
  3. PREDNISONE [Suspect]
     Active Substance: PREDNISONE
     Indication: Acute lymphocytic leukaemia
     Route: 048
  4. CYCLOPHOSPHAMIDE [Suspect]
     Active Substance: CYCLOPHOSPHAMIDE
     Indication: Acute lymphocytic leukaemia
     Route: 042
  5. CYTARABINE [Suspect]
     Active Substance: CYTARABINE
     Indication: Acute lymphocytic leukaemia
     Route: 065
  6. DAUNORUBICIN HYDROCHLORIDE [Suspect]
     Active Substance: DAUNORUBICIN HYDROCHLORIDE
     Indication: Acute lymphocytic leukaemia
     Route: 042
  7. ETOPOSIDE [Suspect]
     Active Substance: ETOPOSIDE
     Indication: Acute lymphocytic leukaemia
     Route: 042
  8. HYDROCORTISONE [Suspect]
     Active Substance: HYDROCORTISONE
     Indication: Acute lymphocytic leukaemia
     Route: 037
  9. LEUCOVORIN [Suspect]
     Active Substance: LEUCOVORIN
     Indication: Acute lymphocytic leukaemia
     Route: 042
  10. MERCAPTOPURINE [Suspect]
     Active Substance: MERCAPTOPURINE
     Indication: Acute lymphocytic leukaemia
     Route: 048
  11. METHOTREXATE [Suspect]
     Active Substance: METHOTREXATE
     Indication: Acute lymphocytic leukaemia
     Route: 065
  12. METHYLPREDNISOLONE SODIUM SUCCINATE [Suspect]
     Active Substance: METHYLPREDNISOLONE SODIUM SUCCINATE
     Indication: Acute lymphocytic leukaemia
     Route: 042
  13. PEGASPARGASE [Suspect]
     Active Substance: PEGASPARGASE
     Indication: Acute lymphocytic leukaemia
     Route: 030
  14. VINCRISTINE SULFATE [Suspect]
     Active Substance: VINCRISTINE SULFATE
     Indication: Acute lymphocytic leukaemia
     Route: 042
  15. FILGRASTIM [Suspect]
     Active Substance: FILGRASTIM
     Indication: Acute lymphocytic leukaemia
  16. CALCIUM [Suspect]
     Active Substance: CALCIUM
     Indication: Acute lymphocytic leukaemia
     Route: 042
  17. ONCASPAR [Suspect]
     Active Substance: PEGASPARGASE
     Indication: Acute lymphocytic leukaemia
     Route: 030

REACTIONS (16)
  - Secondary immunodeficiency [Fatal]
  - Clostridium difficile colitis [Fatal]
  - Enterobacter infection [Fatal]
  - Pneumatosis intestinalis [Fatal]
  - Enteritis [Fatal]
  - Rhinovirus infection [Fatal]
  - Human herpesvirus 6 infection [Fatal]
  - Gastroenteritis norovirus [Fatal]
  - Herpes simplex [Fatal]
  - Human bocavirus infection [Fatal]
  - Bacterial infection [Fatal]
  - Viral infection [Fatal]
  - Venous thrombosis [Fatal]
  - Pneumonia [Unknown]
  - Cystitis bacterial [Unknown]
  - Off label use [Unknown]
